FAERS Safety Report 8992389 (Version 1)
Quarter: 2012Q4

REPORT INFORMATION
  Report Type: Report from Study
  Country: CA (occurrence: CA)
  Receive Date: 20121231
  Receipt Date: 20121231
  Transmission Date: 20130627
  Serious: Yes (Hospitalization)
  Sender: FDA-Public Use
  Company Number: CA-JNJFOC-20121213018

PATIENT
  Age: 33 None
  Sex: Female
  Weight: 64 kg

DRUGS (2)
  1. REMICADE [Suspect]
     Indication: CROHN^S DISEASE
     Dosage: dose 100( units unspecified)
     Route: 042
     Dates: start: 20121218
  2. REMICADE [Suspect]
     Indication: CROHN^S DISEASE
     Dosage: dose: 30 units unspecified
     Route: 042
     Dates: start: 20120712

REACTIONS (3)
  - Abortion spontaneous [Recovered/Resolved]
  - Exposure during pregnancy [Recovered/Resolved]
  - Malaise [Unknown]
